FAERS Safety Report 6167402-7 (Version None)
Quarter: 2009Q2

REPORT INFORMATION
  Report Type: 
  Country: None (occurrence: None)
  Receive Date: 20090424
  Receipt Date: 20090416
  Transmission Date: 20091009
  Serious: Yes (Hospitalization)
  Sender: FDA-Public Use
  Company Number: PHHO2008NL09293

PATIENT

DRUGS (1)
  1. STI571/CGP57148B T35717+CAPS [Suspect]
     Indication: CHRONIC MYELOID LEUKAEMIA
     Dosage: UNK
     Route: 048
     Dates: start: 20031120

REACTIONS (3)
  - COUGH [None]
  - PULMONARY TUBERCULOSIS [None]
  - PYREXIA [None]
